FAERS Safety Report 9819595 (Version 2)
Quarter: 2014Q1

REPORT INFORMATION
  Report Type: Spontaneous
  Country: US (occurrence: US)
  Receive Date: 20140115
  Receipt Date: 20140115
  Transmission Date: 20141002
  Serious: Yes (Hospitalization)
  Sender: FDA-Public Use
  Company Number: US-B.I. PHARMACEUTICALS,INC./RIDGEFIELD-2013-BI-22985BP

PATIENT
  Age: 87 Year
  Sex: Female
  Weight: 61.23 kg

DRUGS (11)
  1. PRADAXA [Suspect]
     Indication: ATRIAL FIBRILLATION
     Dosage: 300 MG
     Route: 048
     Dates: start: 20101108, end: 20120120
  2. BYSTOLIC [Concomitant]
     Dosage: 20 MG
     Route: 048
  3. EFFEXOR [Concomitant]
     Dosage: 150 MG
     Route: 048
  4. RECLAST [Concomitant]
  5. FIORICET [Concomitant]
     Route: 048
  6. LIPITOR [Concomitant]
     Dosage: 40 MG
     Route: 048
  7. FISH OIL [Concomitant]
     Route: 048
  8. LOTREL [Concomitant]
     Route: 048
  9. OMEPRAZOLE [Concomitant]
     Dosage: 20 MG
     Route: 048
  10. XANAX [Concomitant]
     Route: 048
  11. OSCAL [Concomitant]
     Route: 048

REACTIONS (2)
  - Gastrointestinal haemorrhage [Unknown]
  - Anaemia [Unknown]
